FAERS Safety Report 6078860-0 (Version None)
Quarter: 2009Q1

REPORT INFORMATION
  Report Type: 
  Country: None (occurrence: None)
  Receive Date: 20090216
  Receipt Date: 20090212
  Transmission Date: 20090719
  Serious: Yes (Other)
  Sender: FDA-Public Use
  Company Number: US-ASTRAZENECA-2008UW08276

PATIENT
  Age: 34 Year
  Sex: Female

DRUGS (1)
  1. SEROQUEL [Suspect]
     Indication: SLEEP DISORDER
     Route: 048
     Dates: start: 20040401

REACTIONS (2)
  - DIABETES MELLITUS [None]
  - NEUROPATHY PERIPHERAL [None]
